FAERS Safety Report 6076396-4 (Version None)
Quarter: 2009Q1

REPORT INFORMATION
  Report Type: 
  Country: None (occurrence: None)
  Receive Date: 20090209
  Receipt Date: 20090123
  Transmission Date: 20090719
  Serious: Yes (Other)
  Sender: FDA-Public Use
  Company Number: 8041016

PATIENT
  Age: 67 Year
  Sex: Female

DRUGS (1)
  1. KEPPRA [Suspect]
     Dosage: 800 MG 2/D PO
     Route: 048

REACTIONS (2)
  - DYSPHAGIA [None]
  - MUCOSAL INFLAMMATION [None]
